FAERS Safety Report 18841039 (Version 1)
Quarter: 2021Q1

REPORT INFORMATION
  Report Type: Spontaneous
  Country: US (occurrence: US)
  Receive Date: 20210204
  Receipt Date: 20210204
  Transmission Date: 20210419
  Serious: Yes (Other)
  Sender: FDA-Public Use
  Company Number: US-ROCHE-2761803

PATIENT
  Age: 53 Year
  Sex: Male
  Weight: 64 kg

DRUGS (17)
  1. OCREVUS [Suspect]
     Active Substance: OCRELIZUMAB
     Indication: PROGRESSIVE MULTIPLE SCLEROSIS
     Route: 042
  2. SOLU?MEDROL [Concomitant]
     Active Substance: METHYLPREDNISOLONE SODIUM SUCCINATE
     Indication: PREMEDICATION
     Route: 042
  3. HYDROXYZINE [Concomitant]
     Active Substance: HYDROXYZINE HYDROCHLORIDE
  4. ALBUTEROL. [Concomitant]
     Active Substance: ALBUTEROL
  5. LASIX [Concomitant]
     Active Substance: FUROSEMIDE
  6. LAMICTAL [Concomitant]
     Active Substance: LAMOTRIGINE
  7. BENADRYL [Concomitant]
     Active Substance: DIPHENHYDRAMINE HYDROCHLORIDE
     Indication: PREMEDICATION
     Route: 042
  8. TYLENOL [Concomitant]
     Active Substance: ACETAMINOPHEN
     Indication: PREMEDICATION
     Route: 048
  9. DECADRON [Concomitant]
     Active Substance: DEXAMETHASONE
  10. TRILEPTAL [Concomitant]
     Active Substance: OXCARBAZEPINE
  11. COZAAR [Concomitant]
     Active Substance: LOSARTAN POTASSIUM
  12. GABAPENTIN. [Concomitant]
     Active Substance: GABAPENTIN
  13. IMITREX [Concomitant]
     Active Substance: SUMATRIPTAN SUCCINATE
  14. KLOR?CON [Concomitant]
     Active Substance: POTASSIUM CHLORIDE
  15. PHENERGAN [Concomitant]
     Active Substance: PROMETHAZINE HYDROCHLORIDE
  16. TIZANIDINE. [Concomitant]
     Active Substance: TIZANIDINE
  17. MORPHINE [Concomitant]
     Active Substance: MORPHINE

REACTIONS (1)
  - Seizure [Recovered/Resolved]

NARRATIVE: CASE EVENT DATE: 20210201
